FAERS Safety Report 6072098-9 (Version None)
Quarter: 2009Q1

REPORT INFORMATION
  Report Type: 
  Country: None (occurrence: None)
  Receive Date: 20090210
  Receipt Date: 20090210
  Transmission Date: 20090719
  Serious: Yes (Hospitalization)
  Sender: FDA-Public Use
  Company Number: A0767554A

PATIENT
  Age: 31 Year
  Sex: Male

DRUGS (6)
  1. NICORETTE [Suspect]
     Indication: SMOKING CESSATION THERAPY
     Route: 002
     Dates: start: 20070101
  2. ASTHMA DRUG [Concomitant]
     Indication: ASTHMA
     Route: 048
  3. ANXIOLYTIC [Concomitant]
     Indication: ANXIETY
  4. PAXIL [Concomitant]
     Indication: DEPRESSION
  5. VYTORIN [Concomitant]
     Indication: BLOOD CHOLESTEROL INCREASED
  6. AVANDIA [Concomitant]

REACTIONS (8)
  - ANXIETY [None]
  - ASTHMA [None]
  - CARDIAC ARREST [None]
  - CONVULSION [None]
  - DEPRESSION [None]
  - DYSPNOEA [None]
  - LOSS OF CONSCIOUSNESS [None]
  - NICOTINE DEPENDENCE [None]
